FAERS Safety Report 7720773-X (Version None)
Quarter: 2011Q3

REPORT INFORMATION
  Report Type: 
  Country: None (occurrence: None)
  Receive Date: 20110831
  Receipt Date: 20110819
  Transmission Date: 20111222
  Serious: Yes (Hospitalization, Other)
  Sender: FDA-Public Use
  Company Number: US-CELGENEUS-163-21880-11032790

PATIENT
  Sex: Female

DRUGS (27)
  1. REVLIMID [Suspect]
     Indication: MULTIPLE MYELOMA
     Route: 048
     Dates: start: 20101029
  2. REVLIMID [Suspect]
     Dosage: 5 MILLIGRAM
     Route: 048
     Dates: start: 20110125, end: 20110401
  3. LEXAPRO [Concomitant]
     Dosage: 10 MILLIGRAM
     Route: 048
  4. GABAPENTIN [Concomitant]
     Dosage: 300 MILLIGRAM
     Route: 065
  5. DECADRON [Concomitant]
     Route: 065
     Dates: start: 20101029
  6. DECADRON [Concomitant]
     Dosage: 40 MILLIGRAM
     Route: 065
  7. PREDNISONE [Concomitant]
     Route: 065
  8. AREDIA [Concomitant]
     Route: 065
  9. NEURONTIN [Concomitant]
     Dosage: 300 MILLIGRAM
     Route: 065
  10. ATROVENT [Concomitant]
     Route: 065
  11. LEVOTHYROXINE SODIUM [Concomitant]
     Route: 065
  12. NEXIUM [Concomitant]
     Dosage: 40 MILLIGRAM
     Route: 048
  13. PERCOCET [Concomitant]
     Route: 065
  14. POTASSIUM CHLORIDE [Concomitant]
     Dosage: 20 MILLIEQUIVALENTS
     Route: 048
  15. OXYCODONE HCL AND ACETAMINOPHEN [Concomitant]
     Dosage: 1 TABLET
     Route: 048
  16. OMEPRAZOLE [Concomitant]
     Route: 065
  17. COMPAZINE [Concomitant]
     Route: 065
  18. DURAGESIC-100 [Concomitant]
     Dosage: 25 MICROGRAM
     Route: 065
  19. SPIRIVA [Concomitant]
     Route: 065
  20. ALBUTEROL SULFATE AUTOHALER [Concomitant]
     Route: 065
  21. SIMVASTATIN [Concomitant]
     Route: 065
  22. CYTOXAN [Concomitant]
     Indication: PATHOLOGICAL FRACTURE
     Route: 065
     Dates: start: 20100224, end: 20100501
  23. PHENERGAN HCL [Concomitant]
     Indication: NAUSEA
     Dosage: 25 MILLIGRAM
     Route: 065
  24. FLUCONAZOLE [Concomitant]
     Dosage: 50 MILLIGRAM
     Route: 048
  25. CELEXA [Concomitant]
     Route: 065
  26. SYMBICORT [Concomitant]
     Route: 065
  27. MORPHINE [Concomitant]
     Route: 065

REACTIONS (6)
  - NAUSEA [None]
  - VOMITING [None]
  - PATHOLOGICAL FRACTURE [None]
  - PNEUMONIA [None]
  - FATIGUE [None]
  - DEHYDRATION [None]
